FAERS Safety Report 7439815-4 (Version None)
Quarter: 2011Q2

REPORT INFORMATION
  Report Type: 
  Country: None (occurrence: None)
  Receive Date: 20110427
  Receipt Date: 20110420
  Transmission Date: 20111010
  Serious: Yes (Hospitalization, Other)
  Sender: FDA-Public Use
  Company Number: JP-EISAI INC-E2090-01501-SPO-JP

PATIENT
  Sex: Female

DRUGS (5)
  1. ERIL [Concomitant]
  2. LOXONIN [Suspect]
     Dosage: UNKNOWN
     Route: 048
     Dates: start: 20100420, end: 20100428
  3. ATHROMBONE [Concomitant]
  4. EXCEGRAN [Suspect]
     Dosage: UNKNOWN
     Route: 048
     Dates: start: 20100409, end: 20100428
  5. PLETAL [Concomitant]

REACTIONS (3)
  - HEPATIC FUNCTION ABNORMAL [None]
  - DRUG ERUPTION [None]
  - PYREXIA [None]
